FAERS Safety Report 12521672 (Version 2)
Quarter: 2016Q4

REPORT INFORMATION
  Report Type: Report from Study
  Country: None (occurrence: US)
  Receive Date: 20160701
  Receipt Date: 20161130
  Transmission Date: 20170207
  Serious: Yes (Life-Threatening, Hospitalization, Other)
  Sender: FDA-Public Use
  Company Number: US-ABBVIE-16K-163-1660450-00

PATIENT
  Age: 46 Year
  Sex: Female
  Weight: 131.66 kg

DRUGS (6)
  1. PREDNISONE. [Suspect]
     Active Substance: PREDNISONE
     Indication: PRODUCT USED FOR UNKNOWN INDICATION
     Route: 065
  2. FENTANYL. [Concomitant]
     Active Substance: FENTANYL
     Indication: PRODUCT USED FOR UNKNOWN INDICATION
  3. HYDROCODONE [Concomitant]
     Active Substance: HYDROCODONE
     Indication: PRODUCT USED FOR UNKNOWN INDICATION
  4. PREDNISONE. [Suspect]
     Active Substance: PREDNISONE
     Route: 065
  5. PREDNISONE. [Suspect]
     Active Substance: PREDNISONE
     Route: 065
  6. HUMIRA [Suspect]
     Active Substance: ADALIMUMAB
     Indication: RHEUMATOID ARTHRITIS
     Route: 058
     Dates: start: 20100629, end: 201603

REACTIONS (40)
  - Blood potassium decreased [Unknown]
  - Pyrexia [Unknown]
  - Anxiety [Recovered/Resolved]
  - Decreased appetite [Unknown]
  - Ear infection [Recovering/Resolving]
  - Weight increased [Unknown]
  - Bronchitis [Unknown]
  - Swelling face [Unknown]
  - Drug ineffective [Recovered/Resolved]
  - Cardiac failure [Not Recovered/Not Resolved]
  - Nodule [Not Recovered/Not Resolved]
  - Chest pain [Unknown]
  - Dyspnoea [Unknown]
  - Infection [Unknown]
  - Arthralgia [Unknown]
  - Adrenal insufficiency [Recovered/Resolved]
  - Chest discomfort [Recovering/Resolving]
  - Asthenia [Unknown]
  - Pneumonia [Recovered/Resolved]
  - Splenomegaly [Unknown]
  - Hand deformity [Unknown]
  - Bone erosion [Unknown]
  - Diarrhoea [Recovering/Resolving]
  - Arthropod bite [Recovered/Resolved]
  - Joint swelling [Unknown]
  - Cushingoid [Unknown]
  - Grip strength decreased [Unknown]
  - Hypotension [Unknown]
  - Dehydration [Recovering/Resolving]
  - Influenza [Recovered/Resolved]
  - Otorrhoea [Recovered/Resolved]
  - Abdominal distension [Unknown]
  - Activities of daily living impaired [Unknown]
  - Palpitations [Recovered/Resolved]
  - Pneumonia [Recovered/Resolved]
  - Hepatic steatosis [Unknown]
  - Rash erythematous [Unknown]
  - Rash pustular [Unknown]
  - Immunodeficiency [Unknown]
  - Flushing [Unknown]

NARRATIVE: CASE EVENT DATE: 2015
